FAERS Safety Report 11792692 (Version 1)
Quarter: 2015Q4

REPORT INFORMATION
  Report Type: Spontaneous
  Country: US (occurrence: None)
  Receive Date: 20151130
  Receipt Date: 20151130
  Transmission Date: 20160305
  Serious: No
  Sender: FDA-Public Use
  Company Number: None

PATIENT
  Age: 64 Year
  Sex: Male
  Weight: 84.1 kg

DRUGS (1)
  1. LEDIPASVIR/SOFOSBUVIR [Suspect]
     Active Substance: LEDIPASVIR\SOFOSBUVIR
     Indication: HEPATITIS C
     Dates: start: 20150220, end: 20150513

REACTIONS (1)
  - Headache [None]

NARRATIVE: CASE EVENT DATE: 20150313
